FAERS Safety Report 20855118 (Version 1)
Quarter: 2022Q2

REPORT INFORMATION
  Report Type: Spontaneous
  Country: US (occurrence: None)
  Receive Date: 20220520
  Receipt Date: 20220520
  Transmission Date: 20220721
  Serious: No
  Sender: FDA-Public Use
  Company Number: None

PATIENT
  Sex: Male

DRUGS (1)
  1. OTEZLA [Suspect]
     Active Substance: APREMILAST
     Indication: Psoriasis
     Dosage: OTHER QUANTITY : 10/20/30MG;?FREQUENCY : TWICE A DAY;?
     Route: 048
     Dates: start: 202203, end: 202203

REACTIONS (4)
  - Peripheral swelling [None]
  - Pain [None]
  - Nausea [None]
  - Diarrhoea [None]
